FAERS Safety Report 9209312 (Version 1)
Quarter: 2013Q1

REPORT INFORMATION
  Report Type: Spontaneous
  Country: US (occurrence: None)
  Receive Date: 20120723
  Receipt Date: 20120723
  Transmission Date: 20140127
  Serious: Yes (Other)
  Sender: FDA-Public Use
  Company Number: CTI_01450_2012

PATIENT
  Sex: Female
  Weight: 127.01 kg

DRUGS (8)
  1. ZYFLO CR [Suspect]
     Indication: PRODUCT USED FOR UNKNOWN INDICATION
     Route: 048
     Dates: start: 201101, end: 201112
  2. CERTIRIZINE [Concomitant]
  3. FLUOXETINE [Concomitant]
  4. BUPROPION [Concomitant]
  5. GEMFIBROZIL [Concomitant]
  6. REQUIP [Concomitant]
  7. CALCIUM [Concomitant]
  8. SIMVASTATIN [Concomitant]

REACTIONS (1)
  - Hepatic enzyme increased [None]
